FAERS Safety Report 8299374-3 (Version None)
Quarter: 2012Q2

REPORT INFORMATION
  Report Type: 
  Country: None (occurrence: None)
  Receive Date: 20120419
  Receipt Date: 20120409
  Transmission Date: 20120825
  Serious: Yes (Hospitalization)
  Sender: FDA-Public Use
  Company Number: US-JNJFOC-20120404404

PATIENT
  Sex: Male
  Weight: 72.2 kg

DRUGS (4)
  1. CLINDAMYCIN [Concomitant]
  2. REMICADE [Suspect]
     Indication: INFLAMMATORY BOWEL DISEASE
     Route: 042
     Dates: start: 20080118
  3. PREVACID [Concomitant]
  4. REMICADE [Suspect]
     Route: 042
     Dates: start: 20111014

REACTIONS (1)
  - PERITONSILLITIS [None]
